FAERS Safety Report 9344462 (Version 2)
Quarter: 2013Q2

REPORT INFORMATION
  Report Type: Other
  Country: NO (occurrence: NO)
  Receive Date: 20130612
  Receipt Date: 20130612
  Transmission Date: 20140414
  Serious: Yes (Death, Life-Threatening)
  Sender: FDA-Public Use
  Company Number: NO-NICOBRDEVP-2013-05164

PATIENT
  Age: 73 Year
  Sex: Female

DRUGS (5)
  1. FLUDARABINE [Suspect]
     Indication: CHRONIC LYMPHOCYTIC LEUKAEMIA
     Dosage: 40 MG, DAILY ON DAY 1-2-3
     Route: 048
     Dates: start: 20121015, end: 20130107
  2. CYKLOFOSFAMID [Suspect]
     Indication: CHRONIC LYMPHOCYTIC LEUKAEMIA
     Dosage: 400 MG, DAILY ON DAY 1-2-3
     Route: 048
     Dates: start: 20121015, end: 20130107
  3. RITUXIMAB [Suspect]
     Indication: CHRONIC LYMPHOCYTIC LEUKAEMIA
     Dosage: 375 MG/M2, UNKNOWN
     Route: 042
     Dates: start: 20121015, end: 20130107
  4. BACTRIM [Concomitant]
     Indication: PROPHYLAXIS
     Dosage: 2  DF BID ON SAT/SUN
     Route: 065
  5. VALTREX [Concomitant]
     Indication: PROPHYLAXIS
     Dosage: UNK
     Route: 065
     Dates: start: 20121015

REACTIONS (5)
  - Thrombocytopenia [Fatal]
  - Autoimmune haemolytic anaemia [Fatal]
  - Cerebral haemorrhage [Fatal]
  - Subdural haemorrhage [Fatal]
  - Haemolysis [Fatal]
